FAERS Safety Report 26202700 (Version 1)
Quarter: 2025Q4

REPORT INFORMATION
  Report Type: Spontaneous
  Country: US (occurrence: US)
  Receive Date: 20251226
  Receipt Date: 20251226
  Transmission Date: 20260117
  Serious: Yes (Life-Threatening, Hospitalization, Other)
  Sender: LUPIN
  Company Number: US-LUPIN PHARMACEUTICALS INC.-2025-11604

PATIENT
  Age: 42 Year
  Sex: Female

DRUGS (2)
  1. AMLODIPINE [Suspect]
     Active Substance: AMLODIPINE BESYLATE
     Indication: Product used for unknown indication
     Dosage: 8 DOSAGE FORM (ACCIDENTAL OVERDOSE OF EIGHT PILLS OF AMLODIPINE ASSUMING THE MEDICATION WAS IBUPROFEN)
     Route: 065
  2. ADVIL [4]
     Active Substance: IBUPROFEN
     Indication: Headache
     Dosage: UNK (ACCIDENTAL OVERDOSE OF EIGHT PILLS OF AMLODIPINE ASSUMING THE MEDICATION WAS ADVIL)
     Route: 065

REACTIONS (13)
  - Toxicity to various agents [Unknown]
  - Tachycardia [Unknown]
  - Acute kidney injury [Unknown]
  - Metabolic acidosis [Unknown]
  - Hypotension [Unknown]
  - Hypoxia [Unknown]
  - Diastolic dysfunction [Unknown]
  - Thrombosis [Unknown]
  - Hyperglycaemia [Unknown]
  - Multiple organ dysfunction syndrome [Unknown]
  - Cardiogenic shock [Unknown]
  - Accidental overdose [Unknown]
  - Wrong product administered [Unknown]
